FAERS Safety Report 7938274-2 (Version None)
Quarter: 2011Q4

REPORT INFORMATION
  Report Type: 
  Country: None (occurrence: None)
  Receive Date: 20111123
  Receipt Date: 20111115
  Transmission Date: 20120403
  Serious: Yes (Other)
  Sender: FDA-Public Use
  Company Number: IT-ASTRAZENECA-2011SE68469

PATIENT
  Age: 54 Year
  Sex: Female

DRUGS (1)
  1. FASLODEX [Suspect]
     Indication: BREAST CANCER METASTATIC
     Dosage: FASLODEX 500 MG THREE TIMES A MONTH (DAYS 0 - 14 - 28)
     Route: 030

REACTIONS (2)
  - RASH PAPULAR [None]
  - STOMATITIS [None]
